FAERS Safety Report 12377479 (Version 1)
Quarter: 2016Q2

REPORT INFORMATION
  Report Type: Spontaneous
  Country: US (occurrence: US)
  Receive Date: 20160517
  Receipt Date: 20160517
  Transmission Date: 20160815
  Serious: No
  Sender: FDA-Public Use
  Company Number: US-JNJFOC-20160401855

PATIENT
  Sex: Female

DRUGS (2)
  1. MOTRIN IB [Suspect]
     Active Substance: IBUPROFEN
     Indication: PAIN
     Route: 048
  2. MOTRIN IB [Suspect]
     Active Substance: IBUPROFEN
     Route: 048

REACTIONS (3)
  - Product use issue [Unknown]
  - Off label use [Unknown]
  - Therapeutic response unexpected [Unknown]
